FAERS Safety Report 6282638-2 (Version None)
Quarter: 2009Q3

REPORT INFORMATION
  Report Type: 
  Country: None (occurrence: None)
  Receive Date: 20090724
  Receipt Date: 20090721
  Transmission Date: 20100115
  Serious: Yes (Death)
  Sender: FDA-Public Use
  Company Number: PHHY2009GB20349

PATIENT
  Sex: Male

DRUGS (8)
  1. CLOZARIL [Suspect]
     Indication: SCHIZOPHRENIA
     Dosage: 750 MG DAILY
     Route: 048
     Dates: start: 20071029
  2. OLANZAPINE [Concomitant]
     Indication: SCHIZOPHRENIA
     Dosage: 10 MG, UNK
     Route: 048
     Dates: start: 20060101
  3. LANSOPRAZOLE [Concomitant]
     Indication: DYSPEPSIA
     Dosage: 30 MG, UNK
     Route: 048
     Dates: start: 20050101
  4. ATORVASTATIN CALCIUM [Concomitant]
     Indication: LIPIDS INCREASED
     Dosage: 20 MG,DAILY
     Route: 048
     Dates: start: 20040101
  5. OXYBUTYNIN CHLORIDE [Concomitant]
     Indication: POLLAKIURIA
     Dosage: 5 MG DAILY
     Route: 048
  6. VALPROATE SODIUM [Concomitant]
     Indication: SCHIZOPHRENIA
     Dosage: 2 MG DAILY
     Route: 048
  7. DULOXETINE HYDROCHLORIDE [Concomitant]
     Indication: DEPRESSION
     Dosage: 60 MG DAILY
     Route: 048
     Dates: start: 20050101
  8. DESMOPRESSIN ACETATE [Concomitant]
     Indication: NOCTURIA
     Dosage: 20 MG DAILY
     Dates: start: 20070101

REACTIONS (2)
  - ASPHYXIA [None]
  - COMPLETED SUICIDE [None]
